FAERS Safety Report 8248583-8 (Version None)
Quarter: 2012Q1

REPORT INFORMATION
  Report Type: 
  Country: None (occurrence: None)
  Receive Date: 20120330
  Receipt Date: 20120323
  Transmission Date: 20120608
  Serious: Yes (Hospitalization, Other)
  Sender: FDA-Public Use
  Company Number: US-ASTRAZENECA-2011SE27057

PATIENT
  Age: 57 Year
  Sex: Male
  Weight: 64.4 kg

DRUGS (6)
  1. COREG [Concomitant]
  2. SEROQUEL [Suspect]
     Indication: DEPRESSION
     Route: 048
     Dates: start: 20050101
  3. MORPHINE [Concomitant]
  4. SEROQUEL [Suspect]
     Indication: BIPOLAR DISORDER
     Route: 048
     Dates: start: 20050101
  5. RANITIDINE [Concomitant]
  6. LORTAB [Concomitant]

REACTIONS (3)
  - NEOPLASM MALIGNANT [None]
  - OESOPHAGEAL CARCINOMA [None]
  - WEIGHT DECREASED [None]
